APPROVED DRUG PRODUCT: ADAPALENE AND BENZOYL PEROXIDE
Active Ingredient: ADAPALENE; BENZOYL PEROXIDE
Strength: 0.3%;2.5%
Dosage Form/Route: GEL;TOPICAL
Application: A209641 | Product #001 | TE Code: AB
Applicant: ACTAVIS LABORATORIES UT INC INDIRECT WHOLLY OWNED SUB OF TEVA PHARMACEUTICALS USA INC
Approved: Jun 22, 2022 | RLD: No | RS: No | Type: RX